FAERS Safety Report 6449312-0 (Version None)
Quarter: 2009Q4

REPORT INFORMATION
  Report Type: 
  Country: None (occurrence: None)
  Receive Date: 20091120
  Receipt Date: 20091110
  Transmission Date: 20100525
  Serious: Yes (Disabling, Other)
  Sender: FDA-Public Use
  Company Number: US-WYE-H10561609

PATIENT
  Sex: Female
  Weight: 63.11 kg

DRUGS (10)
  1. PRISTIQ [Suspect]
     Indication: MAJOR DEPRESSION
     Route: 048
     Dates: start: 20090507, end: 20090701
  2. PRISTIQ [Suspect]
     Route: 048
     Dates: start: 20090701, end: 20090801
  3. PRISTIQ [Suspect]
     Dosage: WAS TAPERED OFF
     Route: 048
     Dates: start: 20090801, end: 20090804
  4. NEXIUM [Concomitant]
     Indication: GASTROOESOPHAGEAL REFLUX DISEASE
     Dates: start: 20070101
  5. TOPAMAX [Concomitant]
     Indication: MIGRAINE PROPHYLAXIS
     Dosage: UNKNOWN
     Dates: start: 20090401
  6. AZITHROMYCIN [Concomitant]
     Indication: INFECTION
     Dosage: UNKNOWN
     Dates: start: 20090701, end: 20090705
  7. ZOMIG [Concomitant]
     Indication: MIGRAINE
     Dosage: UNKNOWN DOSE, AS NEEDED
  8. LORTAB [Suspect]
     Indication: BACK PAIN
     Dosage: OVERDOSE AMOUNT OF 8 TO 10
     Dates: start: 20090801, end: 20090801
  9. ATIVAN [Concomitant]
     Indication: ANXIETY
     Dosage: .5 MG AS NEEDED
     Dates: start: 20090201
  10. MOBIC [Concomitant]
     Indication: BACK PAIN
     Dosage: 7.5 MG TO 15 MG
     Dates: start: 20070601

REACTIONS (6)
  - CONDITION AGGRAVATED [None]
  - DEPRESSION [None]
  - DRUG INEFFECTIVE [None]
  - INTENTIONAL OVERDOSE [None]
  - SUICIDAL IDEATION [None]
  - SUICIDE ATTEMPT [None]
